FAERS Safety Report 5107534-5 (Version None)
Quarter: 2006Q3

REPORT INFORMATION
  Report Type: 
  Country: None (occurrence: None)
  Receive Date: 20060913
  Receipt Date: 20060913
  Transmission Date: 20061208
  Serious: Yes (Hospitalization)
  Sender: FDA-Public Use
  Company Number: None

PATIENT
  Age: 30 Year
  Sex: Female
  Weight: 108.8633 kg

DRUGS (4)
  1. RISPERDAL [Suspect]
     Indication: ANXIETY
     Dosage: 2 MG BID
     Dates: start: 20060502
  2. RISPERDAL [Suspect]
     Indication: BIPOLAR DISORDER
     Dosage: 2 MG BID
     Dates: start: 20060502
  3. MULTI-VITAMIN [Concomitant]
  4. YASMINE [Concomitant]

REACTIONS (1)
  - DRUG HYPERSENSITIVITY [None]
